FAERS Safety Report 16465662 (Version 8)
Quarter: 2019Q3

REPORT INFORMATION
  Report Type: Report from Study
  Country: MY (occurrence: MY)
  Receive Date: 20190621
  Receipt Date: 20190819
  Transmission Date: 20191004
  Serious: Yes (Death, Hospitalization, Other)
  Sender: FDA-Public Use
  Company Number: PHHY2018MY066844

PATIENT
  Age: 57 Year
  Sex: Female
  Weight: 52 kg

DRUGS (17)
  1. RANITIDINE. [Concomitant]
     Active Substance: RANITIDINE
     Dosage: 50 OT, UNK
     Route: 042
     Dates: start: 20180102, end: 20180104
  2. MAXOLON [Concomitant]
     Active Substance: METOCLOPRAMIDE HYDROCHLORIDE
     Indication: PROPHYLAXIS
     Dosage: 10 OT, UNK
     Route: 048
     Dates: start: 20171109, end: 20171123
  3. ZOMETA [Concomitant]
     Active Substance: ZOLEDRONIC ACID
     Indication: PRODUCT USED FOR UNKNOWN INDICATION
     Dosage: UNK
     Route: 042
     Dates: start: 20180116, end: 20180116
  4. VOTRIENT [Suspect]
     Active Substance: PAZOPANIB HYDROCHLORIDE
     Dosage: 600 MG, UNK
     Route: 048
     Dates: start: 20180228, end: 20180327
  5. VOTRIENT [Suspect]
     Active Substance: PAZOPANIB HYDROCHLORIDE
     Dosage: 600 OT, UNK
     Route: 048
     Dates: start: 20180701
  6. CALCIUM GLUCONATE. [Concomitant]
     Active Substance: CALCIUM GLUCONATE
     Indication: HYPERKALAEMIA
     Dosage: 10 OT, UNK
     Route: 042
     Dates: start: 20180412
  7. DEXAMETHASONE. [Concomitant]
     Active Substance: DEXAMETHASONE
     Indication: SPINAL CORD COMPRESSION
     Dosage: 8 OT, UNK
     Route: 048
     Dates: start: 20171217, end: 20171220
  8. AMLODIPINE [Concomitant]
     Active Substance: AMLODIPINE BESYLATE
     Indication: HYPERTENSION
     Dosage: 5 MG, QD
     Route: 065
     Dates: start: 2007
  9. DEXAMETHASONE. [Concomitant]
     Active Substance: DEXAMETHASONE
     Dosage: 4 OT, UNK
     Route: 048
     Dates: start: 20171224, end: 20171226
  10. CARMINATIVE MIXTURE [Concomitant]
     Indication: ABDOMINAL DISTENSION
     Dosage: 10 OT, UNK
     Route: 048
     Dates: start: 20180228, end: 20180304
  11. DEXAMETHASONE. [Concomitant]
     Active Substance: DEXAMETHASONE
     Dosage: 8 OT, UNK
     Route: 042
     Dates: start: 20180102, end: 20180104
  12. OXYNORM [Concomitant]
     Active Substance: OXYCODONE HYDROCHLORIDE
     Indication: PAIN
     Dosage: 10 OT, UNK
     Route: 048
     Dates: start: 20171103, end: 20180104
  13. VOTRIENT [Suspect]
     Active Substance: PAZOPANIB HYDROCHLORIDE
     Indication: METASTATIC RENAL CELL CARCINOMA
     Dosage: 400 MG, UNK
     Route: 048
     Dates: start: 20171112, end: 20180114
  14. NIVOLUMAB [Concomitant]
     Active Substance: NIVOLUMAB
     Indication: PRODUCT USED FOR UNKNOWN INDICATION
     Dosage: 3 MG/KG, UNK (100 MG)
     Route: 065
     Dates: start: 20180405, end: 20180405
  15. RANITIDINE. [Concomitant]
     Active Substance: RANITIDINE
     Indication: PROPHYLAXIS
     Dosage: 150 OT, UNK
     Route: 048
     Dates: start: 20171217, end: 20180101
  16. CELECOXIB. [Concomitant]
     Active Substance: CELECOXIB
     Indication: PAIN
     Dosage: 200 OT, UNK
     Route: 048
     Dates: start: 20171103
  17. DEXAMETHASONE. [Concomitant]
     Active Substance: DEXAMETHASONE
     Dosage: 4 OT, UNK
     Route: 048
     Dates: start: 20171221, end: 20171221

REACTIONS (15)
  - Epilepsy [Unknown]
  - Hyperkalaemia [Fatal]
  - Constipation [Recovered/Resolved]
  - Metastatic renal cell carcinoma [Fatal]
  - Apnoea [Unknown]
  - Impaired healing [Recovered/Resolved]
  - Pulse absent [Unknown]
  - Neuralgia [Recovered/Resolved]
  - Anaemia [Not Recovered/Not Resolved]
  - Acute kidney injury [Not Recovered/Not Resolved]
  - Anaemia [Recovered/Resolved]
  - Impaired healing [Not Recovered/Not Resolved]
  - Hyperkalaemia [Recovered/Resolved]
  - Lethargy [Not Recovered/Not Resolved]
  - Anaemia [Recovered/Resolved]

NARRATIVE: CASE EVENT DATE: 20171123
